FAERS Safety Report 6655443-2 (Version None)
Quarter: 2010Q1

REPORT INFORMATION
  Report Type: 
  Country: None (occurrence: None)
  Receive Date: 20100329
  Receipt Date: 20100324
  Transmission Date: 20100710
  Serious: Yes (Life-Threatening, Hospitalization)
  Sender: FDA-Public Use
  Company Number: BG-ELI_LILLY_AND_COMPANY-BG201001005765

PATIENT
  Sex: Male
  Weight: 61 kg

DRUGS (9)
  1. PRASUGREL HYDROCHLORIDE [Suspect]
     Indication: ACUTE CORONARY SYNDROME
     Route: 048
     Dates: start: 20100122
  2. ASPIRIN [Concomitant]
     Dosage: 100 MG, UNK
     Dates: start: 20091212, end: 20100118
  3. ASPIRIN [Concomitant]
     Dosage: 100 MG, UNK
     Dates: start: 20100118
  4. BISOPROLOL [Concomitant]
     Indication: PROPHYLAXIS
     Dates: start: 20091228
  5. ZOFEN                              /00109201/ [Concomitant]
     Indication: PROPHYLAXIS
     Dates: start: 20091212
  6. FURANTHRIL [Concomitant]
     Indication: CARDIAC FAILURE
     Dates: start: 20091212
  7. SPIRONOLACTONE [Concomitant]
     Indication: CARDIAC FAILURE
     Dates: start: 20091212
  8. CEFUROXIME SODIUM [Concomitant]
     Indication: PNEUMONIA
     Dates: start: 20100118
  9. CIPROFLOXACIN [Concomitant]
     Indication: PNEUMONIA
     Dates: start: 20100118

REACTIONS (2)
  - MYOCARDIAL INFARCTION [None]
  - VENTRICULAR FIBRILLATION [None]
